FAERS Safety Report 9782543 (Version 3)
Quarter: 2014Q1

REPORT INFORMATION
  Report Type: Spontaneous
  Country: IT (occurrence: None)
  Receive Date: 20131220
  Receipt Date: 20140218
  Transmission Date: 20141002
  Serious: Yes (Hospitalization)
  Sender: FDA-Public Use
  Company Number: AUR-APL-2013-10491

PATIENT
  Age: 70 Year
  Sex: Female

DRUGS (6)
  1. GABAPENTIN (GABAPENTIN) [Suspect]
     Indication: PRODUCT USED FOR UNKNOWN INDICATION
     Dosage: 14 DOSAGE FORMS, TOTAL, ORAL
     Route: 048
     Dates: start: 20131108, end: 20131108
  2. ACETAMOL [Suspect]
     Indication: PRODUCT USED FOR UNKNOWN INDICATION
     Dosage: 4 DOSAGE FORMS, TOTAL, ORAL
     Route: 048
     Dates: start: 20131108, end: 20131108
  3. PALEXIA [Suspect]
     Indication: PRODUCT USED FOR UNKNOWN INDICATION
     Dosage: 9 DOSAGE FORMS, TOTAL
     Dates: start: 20131108, end: 20131108
  4. PATROL [Suspect]
     Indication: PRODUCT USED FOR UNKNOWN INDICATION
     Dosage: 7 DOSAGE FORMS, TOTAL, ORAL
     Route: 048
     Dates: start: 20131108, end: 20131108
  5. SODIUM RISEDRONATE [Suspect]
     Indication: PRODUCT USED FOR UNKNOWN INDICATION
     Dosage: 3 DOSAGE FORMS, TOTAL, ORAL
     Route: 048
     Dates: start: 20131108, end: 20131108
  6. PINEAL NOTTE (PINEAL NOTTE) [Concomitant]

REACTIONS (9)
  - Drug abuse [None]
  - Confusional state [None]
  - Depression [None]
  - Toxicity to various agents [None]
  - Suicide attempt [None]
  - Depressed level of consciousness [None]
  - Malnutrition [None]
  - Anaemia [None]
  - Anorexia nervosa [None]
